FAERS Safety Report 6827148-6 (Version None)
Quarter: 2010Q3

REPORT INFORMATION
  Report Type: 
  Country: None (occurrence: None)
  Receive Date: 20100709
  Receipt Date: 20100629
  Transmission Date: 20110219
  Serious: Yes (Hospitalization)
  Sender: FDA-Public Use
  Company Number: US-ELI_LILLY_AND_COMPANY-US201005001746

PATIENT
  Sex: Male
  Weight: 111.57 kg

DRUGS (17)
  1. BYETTA [Suspect]
     Indication: TYPE 2 DIABETES MELLITUS
     Dosage: 10 UG, 2/D
     Dates: start: 20070301, end: 20070401
  2. BYETTA [Suspect]
     Dosage: 10 UG, 2/D
     Dates: start: 20070501, end: 20100318
  3. GLUCOPHAGE XR [Concomitant]
     Dosage: 2 MG, UNK
  4. GLUCOPHAGE XR [Concomitant]
     Dosage: 2 MG, UNK
  5. LANTUS [Concomitant]
     Dosage: 65 U, DAILY (1/D)
  6. LANTUS [Concomitant]
     Dosage: 65 U, DAILY (1/D)
  7. LOTREL [Concomitant]
     Dosage: UNK, DAILY (1/D)
  8. TRICOR [Concomitant]
     Dosage: 135 MG, DAILY (1/D)
  9. TRICOR [Concomitant]
     Dosage: 145 MG, UNK
  10. FISH OIL [Concomitant]
  11. ASPIRIN [Concomitant]
  12. MAVIK [Concomitant]
     Dosage: 4 MG, EACH MORNING
  13. NORVASC [Concomitant]
     Dosage: 10 MG, EACH EVENING
  14. TRILIPIX [Concomitant]
     Dosage: 135 MG, UNK
  15. NIASPAN [Concomitant]
     Dosage: 1 G, UNK
  16. GLUCOVANCE [Concomitant]
     Dosage: 2 D/F, 2/D
  17. AVANDIA [Concomitant]
     Dosage: 8 MG, DAILY (1/D)

REACTIONS (3)
  - OFF LABEL USE [None]
  - PANCREATITIS [None]
  - WEIGHT DECREASED [None]
